FAERS Safety Report 4441067-4 (Version None)
Quarter: 2004Q3

REPORT INFORMATION
  Report Type: 
  Country: None (occurrence: None)
  Receive Date: 20040902
  Receipt Date: 20040902
  Transmission Date: 20050211
  Serious: No
  Sender: FDA-Public Use
  Company Number: None

PATIENT
  Age: 48 Year
  Sex: Female
  Weight: 58.0604 kg

DRUGS (2)
  1. IRON DEXTRAN [Suspect]
     Indication: ANAEMIA
     Dosage: 1000MG ONE TIME INTRAVENOUS
     Route: 042
     Dates: start: 20040716, end: 20040716
  2. CLONAZEPAM [Concomitant]

REACTIONS (5)
  - CHEST PAIN [None]
  - ERYTHEMA [None]
  - PRURITUS [None]
  - THROAT TIGHTNESS [None]
  - VISUAL DISTURBANCE [None]
